FAERS Safety Report 14321337 (Version 6)
Quarter: 2018Q2

REPORT INFORMATION
  Report Type: Report from Study
  Country: CA (occurrence: CA)
  Receive Date: 20171223
  Receipt Date: 20180511
  Transmission Date: 20180711
  Serious: Yes (Other)
  Sender: FDA-Public Use
  Company Number: PHHY2017CA098470

PATIENT
  Age: 49 Year
  Sex: Male

DRUGS (14)
  1. SANDOSTATIN LAR DEPOT [Suspect]
     Active Substance: OCTREOTIDE ACETATE
     Dosage: 30 MG, QMO
     Route: 030
     Dates: start: 20170413, end: 20170512
  2. SANDOSTATIN [Suspect]
     Active Substance: OCTREOTIDE ACETATE
     Indication: CARCINOID TUMOUR OF THE GASTROINTESTINAL TRACT
     Dosage: 5 UG, TID
     Route: 058
     Dates: start: 20100422, end: 2010
  3. SANDOSTATIN LAR DEPOT [Suspect]
     Active Substance: OCTREOTIDE ACETATE
     Dosage: 20 MG, EVERY 3 WEEK
     Route: 030
  4. SANDOSTATIN LAR DEPOT [Suspect]
     Active Substance: OCTREOTIDE ACETATE
     Indication: CARCINOID TUMOUR OF THE GASTROINTESTINAL TRACT
     Dosage: 40 MG, QMO
     Route: 030
     Dates: start: 20100825
  5. SANDOSTATIN LAR DEPOT [Suspect]
     Active Substance: OCTREOTIDE ACETATE
     Dosage: 40 MG, QMO
     Route: 030
     Dates: start: 20170630
  6. SANDOSTATIN LAR DEPOT [Suspect]
     Active Substance: OCTREOTIDE ACETATE
     Dosage: 30 MG, EVERY 3 WEEK
     Route: 030
  7. SANDOSTATIN LAR DEPOT [Suspect]
     Active Substance: OCTREOTIDE ACETATE
     Dosage: 20 MG, EVERY 2 WEEK
     Route: 030
  8. SANDOSTATIN LAR DEPOT [Suspect]
     Active Substance: OCTREOTIDE ACETATE
     Dosage: 20 MG, QMO
     Route: 030
  9. SANDOSTATIN LAR DEPOT [Suspect]
     Active Substance: OCTREOTIDE ACETATE
     Dosage: 10 MG, QMO
     Route: 030
  10. SANDOSTATIN LAR DEPOT [Suspect]
     Active Substance: OCTREOTIDE ACETATE
     Dosage: 20 MG, QMO
     Route: 030
     Dates: start: 20160927, end: 20170317
  11. HYDROMORPH CONTIN [Concomitant]
     Active Substance: HYDROMORPHONE
     Indication: PRODUCT USED FOR UNKNOWN INDICATION
     Dosage: 12 MG, BID
     Route: 065
     Dates: start: 2016
  12. SANDOSTATIN [Suspect]
     Active Substance: OCTREOTIDE ACETATE
     Indication: FLUSHING
     Dosage: 100-200 MCG
     Route: 058
     Dates: start: 2017
  13. SANDOSTATIN LAR DEPOT [Suspect]
     Active Substance: OCTREOTIDE ACETATE
     Dosage: 30 MG, EVERY 2 WEEK
     Route: 030
  14. SANDOSTATIN LAR DEPOT [Suspect]
     Active Substance: OCTREOTIDE ACETATE
     Dosage: 30 MG, EVERY 3 WEEK
     Route: 030
     Dates: start: 20170602

REACTIONS (11)
  - Feeling of relaxation [Unknown]
  - Blood glucose fluctuation [Unknown]
  - Blindness [Unknown]
  - Blood pressure increased [Unknown]
  - Peripheral swelling [Unknown]
  - Inappropriate schedule of drug administration [Unknown]
  - Visual impairment [Unknown]
  - Body temperature decreased [Unknown]
  - Headache [Unknown]
  - Needle issue [Unknown]
  - Oedema [Unknown]

NARRATIVE: CASE EVENT DATE: 2017
